FAERS Safety Report 5857751-1 (Version None)
Quarter: 2008Q3

REPORT INFORMATION
  Report Type: 
  Country: None (occurrence: None)
  Receive Date: 20080826
  Receipt Date: 20080815
  Transmission Date: 20090109
  Serious: Yes (Other)
  Sender: FDA-Public Use
  Company Number: US-JNJFOC-20080803755

PATIENT
  Sex: Female
  Weight: 66.68 kg

DRUGS (9)
  1. REMICADE [Suspect]
     Route: 042
  2. REMICADE [Suspect]
     Route: 042
  3. REMICADE [Suspect]
     Route: 042
  4. REMICADE [Suspect]
     Route: 042
  5. REMICADE [Suspect]
     Indication: RHEUMATOID ARTHRITIS
     Route: 042
  6. LESCOL [Concomitant]
     Indication: BLOOD CHOLESTEROL INCREASED
  7. BONIVA [Concomitant]
     Indication: OSTEOPOROSIS
  8. NEXIUM [Concomitant]
     Indication: GASTROOESOPHAGEAL REFLUX DISEASE
  9. ACTIVELLA [Concomitant]
     Indication: HORMONE LEVEL ABNORMAL

REACTIONS (5)
  - ANTIBODY TEST POSITIVE [None]
  - CHEST PAIN [None]
  - DIARRHOEA [None]
  - HYPOTENSION [None]
  - SYSTEMIC LUPUS ERYTHEMATOSUS [None]
